FAERS Safety Report 10792682 (Version 3)
Quarter: 2015Q3

REPORT INFORMATION
  Report Type: Report from Study
  Country: US (occurrence: US)
  Receive Date: 20150213
  Receipt Date: 20150917
  Transmission Date: 20151125
  Serious: Yes (Hospitalization)
  Sender: FDA-Public Use
  Company Number: US-ARIAD PHARMACEUTICALS, INC-2014US003248

PATIENT
  Age: 54 Year
  Sex: Female
  Weight: 93 kg

DRUGS (30)
  1. TYLENOL [Concomitant]
     Active Substance: ACETAMINOPHEN
     Indication: ABDOMINAL PAIN
  2. FISH OIL [Concomitant]
     Active Substance: FISH OIL
     Indication: PROPHYLAXIS
     Dosage: UNK
     Route: 048
     Dates: start: 20120430
  3. PONATINIB [Suspect]
     Active Substance: PONATINIB
     Indication: CHRONIC MYELOID LEUKAEMIA
     Dosage: 45 MG, QD
     Route: 048
     Dates: start: 20110627, end: 20130929
  4. NEBIVOLOL. [Concomitant]
     Active Substance: NEBIVOLOL
     Indication: HYPERTENSION
     Dosage: UNK
     Route: 048
     Dates: start: 20121128
  5. NAPROXEN. [Concomitant]
     Active Substance: NAPROXEN
     Indication: ARTHRALGIA
     Dosage: UNK
     Route: 048
     Dates: start: 201309
  6. HUMAN ALBUMIN [Concomitant]
     Active Substance: ALBUMIN (HUMAN)
     Indication: HYPOALBUMINAEMIA
     Dosage: UNK
     Route: 042
     Dates: start: 20140313, end: 20140313
  7. CEFTRIAXONE. [Concomitant]
     Active Substance: CEFTRIAXONE
     Indication: INFECTION PROPHYLAXIS
     Dosage: UNK
     Route: 042
     Dates: start: 20140314, end: 20140315
  8. ULTRAM [Concomitant]
     Active Substance: TRAMADOL HYDROCHLORIDE
     Indication: ABDOMINAL PAIN
     Dosage: UNK
     Route: 048
     Dates: start: 20140314, end: 20140319
  9. TYLENOL [Concomitant]
     Active Substance: ACETAMINOPHEN
     Indication: BONE PAIN
     Dosage: UNK
     Route: 048
     Dates: start: 20110615
  10. NASONEX [Concomitant]
     Active Substance: MOMETASONE FUROATE
     Indication: ALLERGY PROPHYLAXIS
     Dosage: UNK
     Route: 045
     Dates: start: 20121128, end: 20140430
  11. IBUPROFEN. [Concomitant]
     Active Substance: IBUPROFEN
     Indication: BONE PAIN
     Dosage: UNK
     Route: 048
     Dates: start: 20130813
  12. HUMAN ALBUMIN [Concomitant]
     Active Substance: ALBUMIN (HUMAN)
     Dosage: UNK
     Route: 042
     Dates: start: 20140324, end: 20140324
  13. LIDOCAINE W/EPINEPHRINE [Concomitant]
     Active Substance: EPINEPHRINE\LIDOCAINE
     Indication: ABDOMINAL PAIN
     Dosage: UNK
     Route: 030
     Dates: start: 20140314, end: 20140315
  14. MORPHINE [Concomitant]
     Active Substance: MORPHINE
     Indication: ABDOMINAL PAIN
     Dosage: UNK
     Route: 042
     Dates: start: 20140315, end: 20140315
  15. SYNTHROID [Concomitant]
     Active Substance: LEVOTHYROXINE SODIUM
     Indication: HYPOTHYROIDISM
     Dosage: UNK
     Route: 048
  16. NORVASC [Concomitant]
     Active Substance: AMLODIPINE BESYLATE
     Indication: HYPERTENSION
     Dosage: UNK
     Route: 048
  17. LEXAPRO [Concomitant]
     Active Substance: ESCITALOPRAM OXALATE
     Indication: DEPRESSION
     Dosage: UNK
     Route: 048
  18. COLACE [Concomitant]
     Active Substance: DOCUSATE SODIUM
     Indication: CONSTIPATION
     Dosage: UNK
     Dates: start: 20110725
  19. ASPIRIN. [Concomitant]
     Active Substance: ASPIRIN
     Indication: PROPHYLAXIS
     Dosage: 81 MG, QD
     Route: 048
     Dates: start: 20131216, end: 20140403
  20. CENTRUM SILVER [Concomitant]
     Active Substance: VITAMINS
     Indication: VITAMIN SUPPLEMENTATION
     Dosage: UNK
     Route: 048
  21. HYDROCODONE BITARTRATE AND ACETAMINOPHEN [Concomitant]
     Active Substance: ACETAMINOPHEN\HYDROCODONE BITARTRATE
     Indication: BONE PAIN
     Dosage: UNK
     Route: 048
     Dates: start: 20130111
  22. MIRALAX [Concomitant]
     Active Substance: POLYETHYLENE GLYCOL 3350
     Indication: CONSTIPATION
     Dosage: UNK
     Route: 048
     Dates: start: 201312, end: 20140430
  23. PERI-COLACE [Concomitant]
     Active Substance: CASANTHRANOL\DOCUSATE SODIUM
     Indication: CONSTIPATION
     Dosage: UNK
     Route: 048
     Dates: start: 20140315, end: 20140430
  24. CLOTRIMAZOLE AND BETAMETHASONE [Concomitant]
     Indication: HYPOTHYROIDISM
     Dosage: UNK
     Route: 061
     Dates: start: 20130723
  25. PRILOSEC [Concomitant]
     Active Substance: OMEPRAZOLE MAGNESIUM
     Indication: GASTROOESOPHAGEAL REFLUX DISEASE
     Dosage: UNK
     Route: 048
     Dates: start: 20130731, end: 20140327
  26. DULCOLAX [Concomitant]
     Active Substance: BISACODYL OR DOCUSATE SODIUM
     Indication: CONSTIPATION
     Dosage: UNK
     Route: 054
     Dates: start: 20111017
  27. PONATINIB [Suspect]
     Active Substance: PONATINIB
     Dosage: 45 MG, QD
     Route: 048
     Dates: start: 20131002, end: 20140318
  28. DIOSMIPLEX [Concomitant]
     Indication: NUTRITIONAL SUPPLEMENTATION
     Dosage: UNK
     Route: 048
     Dates: start: 20120430
  29. ALDACTONE [Concomitant]
     Active Substance: SPIRONOLACTONE
     Indication: ASCITES
     Dosage: UNK
     Route: 048
     Dates: start: 201402
  30. LIDOCAINE. [Concomitant]
     Active Substance: LIDOCAINE
     Indication: PREMEDICATION
     Dosage: UNK
     Route: 030
     Dates: start: 20140313, end: 20140313

REACTIONS (1)
  - Non-alcoholic steatohepatitis [Recovered/Resolved]

NARRATIVE: CASE EVENT DATE: 20140327
